FAERS Safety Report 9472506 (Version 2)
Quarter: 2013Q3

REPORT INFORMATION
  Report Type: Spontaneous
  Country: FR (occurrence: FR)
  Receive Date: 20130823
  Receipt Date: 20130902
  Transmission Date: 20140515
  Serious: Yes (Hospitalization)
  Sender: FDA-Public Use
  Company Number: PHHY2013FR090605

PATIENT
  Age: 53 Year
  Sex: Female

DRUGS (2)
  1. GLIVEC [Suspect]
     Indication: GASTROINTESTINAL STROMAL TUMOUR
     Dosage: 400 MG, QD
     Route: 048
     Dates: start: 201305
  2. INNOHEP [Concomitant]
     Dosage: UNK UKN, UNK
     Dates: start: 201303

REACTIONS (7)
  - Metastases to liver [Unknown]
  - Intestinal ischaemia [Unknown]
  - Peritoneal haemorrhage [Unknown]
  - Septic shock [Unknown]
  - Peritonitis [Unknown]
  - Pulmonary embolism [Unknown]
  - Hirsutism [Not Recovered/Not Resolved]
